FAERS Safety Report 8161262-0 (Version None)
Quarter: 2012Q1

REPORT INFORMATION
  Report Type: 
  Country: None (occurrence: None)
  Receive Date: 20120222
  Receipt Date: 20120222
  Transmission Date: 20120608
  Serious: No
  Sender: FDA-Public Use
  Company Number: None

PATIENT

DRUGS (1)
  1. PREDNISOLONE ACETATE [Suspect]

REACTIONS (4)
  - DIPLOPIA [None]
  - PHOTOPHOBIA [None]
  - HALO VISION [None]
  - DIZZINESS [None]
